FAERS Safety Report 21215376 (Version 3)
Quarter: 2023Q1

REPORT INFORMATION
  Report Type: Other
  Country: AU (occurrence: AU)
  Receive Date: 20220816
  Receipt Date: 20230221
  Transmission Date: 20230418
  Serious: No
  Sender: FDA-Public Use
  Company Number: AU-PAREXEL-2019AU008369

PATIENT
  Sex: Male

DRUGS (1)
  1. ELIGARD [Suspect]
     Active Substance: LEUPROLIDE ACETATE
     Indication: Prostate cancer
     Dosage: 45 MILLIGRAM, Q 6 MONTH

REACTIONS (5)
  - Arthritis [Unknown]
  - COVID-19 [Unknown]
  - Night sweats [Unknown]
  - Back pain [Unknown]
  - Prostatic specific antigen increased [Unknown]
